FAERS Safety Report 4772259-2 (Version None)
Quarter: 2005Q3

REPORT INFORMATION
  Report Type: 
  Country: None (occurrence: None)
  Receive Date: 20050919
  Receipt Date: 20050502
  Transmission Date: 20060218
  Serious: No
  Sender: FDA-Public Use
  Company Number: US-BRISTOL-MYERS SQUIBB COMPANY-12953378

PATIENT
  Sex: Female

DRUGS (2)
  1. DEFINITY [Suspect]
     Route: 040
     Dates: start: 20050429, end: 20050429
  2. DOBUTAMINE HCL [Suspect]
     Route: 040
     Dates: start: 20050429, end: 20050429

REACTIONS (2)
  - HEADACHE [None]
  - NECK PAIN [None]
